FAERS Safety Report 4592505-8 (Version None)
Quarter: 2005Q1

REPORT INFORMATION
  Report Type: 
  Country: None (occurrence: None)
  Receive Date: 20050222
  Receipt Date: 20050202
  Transmission Date: 20050727
  Serious: Yes (Hospitalization)
  Sender: FDA-Public Use
  Company Number: MED000016

PATIENT
  Age: 14 Month
  Sex: Male

DRUGS (1)
  1. 5% DEXTROSE 0.2% SODIUM CHLORIDE AND POTASSIUM CHLORIDE INJECTIONS IN [Suspect]
     Indication: VOMITING
     Dosage: 40 ML;QH;INTRAVENOUS
     Route: 042
     Dates: start: 20050101

REACTIONS (2)
  - INFUSION SITE REACTION [None]
  - THERMAL BURN [None]
